FAERS Safety Report 12994071 (Version 1)
Quarter: 2016Q4

REPORT INFORMATION
  Report Type: Spontaneous
  Country: US (occurrence: US)
  Receive Date: 20161201
  Receipt Date: 20161201
  Transmission Date: 20170207
  Serious: Yes (Other)
  Sender: FDA-Public Use
  Company Number: None

PATIENT
  Age: 55 Year
  Sex: Male
  Weight: 146.25 kg

DRUGS (9)
  1. XANAX [Concomitant]
     Active Substance: ALPRAZOLAM
  2. CPAP MACHINE [Concomitant]
  3. LOTREL [Concomitant]
     Active Substance: AMLODIPINE BESYLATE\BENAZEPRIL HYDROCHLORIDE
  4. CRESTOR [Concomitant]
     Active Substance: ROSUVASTATIN CALCIUM
  5. DAILY MULTI VITAMIN [Concomitant]
  6. COQ10 [Concomitant]
     Active Substance: UBIDECARENONE
  7. FLUOXETINE [Suspect]
     Active Substance: FLUOXETINE HYDROCHLORIDE
     Indication: DEPRESSION
     Dosage: ?          QUANTITY:1 CAPSULE(S);?
     Route: 048
     Dates: start: 20161124, end: 20161130
  8. WATER PILL [Concomitant]
     Active Substance: UNSPECIFIED INGREDIENT
  9. VITAMIN D [Concomitant]
     Active Substance: CHOLECALCIFEROL

REACTIONS (7)
  - Feeling jittery [None]
  - Anxiety [None]
  - Crying [None]
  - Nausea [None]
  - Nervousness [None]
  - Depressed mood [None]
  - Product substitution issue [None]

NARRATIVE: CASE EVENT DATE: 20161127
